FAERS Safety Report 9629469 (Version 1)
Quarter: 2013Q4

REPORT INFORMATION
  Report Type: Spontaneous
  Country: US (occurrence: US)
  Receive Date: 20131017
  Receipt Date: 20131017
  Transmission Date: 20140711
  Serious: Yes (Hospitalization, Other)
  Sender: FDA-Public Use
  Company Number: US-NOVOPROD-389758

PATIENT
  Age: 45 Year
  Sex: Male

DRUGS (2)
  1. VICTOZA [Suspect]
     Indication: TYPE 1 DIABETES MELLITUS
     Dosage: UNK
     Route: 058
     Dates: start: 2013, end: 201310
  2. VICTOZA [Suspect]
     Indication: OFF LABEL USE

REACTIONS (3)
  - Urinary retention [Not Recovered/Not Resolved]
  - Renal failure acute [Not Recovered/Not Resolved]
  - Off label use [Recovered/Resolved]
